FAERS Safety Report 6884382-7 (Version None)
Quarter: 2010Q3

REPORT INFORMATION
  Report Type: 
  Country: None (occurrence: None)
  Receive Date: 20100729
  Receipt Date: 20070705
  Transmission Date: 20110219
  Serious: No
  Sender: FDA-Public Use
  Company Number: US-PFIZER INC-2007055788

PATIENT
  Age: 60 Year
  Sex: Female
  Weight: 90 kg

DRUGS (6)
  1. CELEBREX [Suspect]
     Indication: MUSCULOSKELETAL STIFFNESS
     Dates: start: 20020101, end: 20070101
  2. INSULIN [Concomitant]
  3. SERTRALINE HYDROCHLORIDE [Concomitant]
  4. AVALIDE [Concomitant]
  5. NORVASC [Concomitant]
  6. WARFARIN [Concomitant]

REACTIONS (4)
  - ACARODERMATITIS [None]
  - PAIN OF SKIN [None]
  - PRURITUS [None]
  - SKIN DISORDER [None]
